FAERS Safety Report 6171327-0 (Version None)
Quarter: 2009Q2

REPORT INFORMATION
  Report Type: 
  Country: None (occurrence: None)
  Receive Date: 20090428
  Receipt Date: 20090428
  Transmission Date: 20091009
  Serious: No
  Sender: FDA-Public Use
  Company Number: None

PATIENT
  Sex: Female
  Weight: 74.8435 kg

DRUGS (1)
  1. YASMIN [Suspect]
     Dosage: ONE PILL ONCE DAILY PO
     Route: 048
     Dates: start: 20020101, end: 20080620

REACTIONS (10)
  - BREAST CYST [None]
  - DISTURBANCE IN ATTENTION [None]
  - DIZZINESS [None]
  - DYSPHAGIA [None]
  - HYPOTHYROIDISM [None]
  - MIGRAINE [None]
  - PHARYNGEAL MASS [None]
  - PRURITUS [None]
  - SYNCOPE [None]
  - URTICARIA [None]
